FAERS Safety Report 13834976 (Version 1)
Quarter: 2017Q3

REPORT INFORMATION
  Report Type: Spontaneous
  Country: FR (occurrence: FR)
  Receive Date: 20170804
  Receipt Date: 20170804
  Transmission Date: 20171127
  Serious: Yes (Hospitalization)
  Sender: FDA-Public Use
  Company Number: FR-ABBVIE-17K-056-2058910-00

PATIENT
  Age: 69 Year
  Sex: Female

DRUGS (2)
  1. LEFLUNOMIDE. [Concomitant]
     Active Substance: LEFLUNOMIDE
     Indication: RHEUMATOID ARTHRITIS
     Dates: start: 201609
  2. HUMIRA [Suspect]
     Active Substance: ADALIMUMAB
     Indication: RHEUMATOID ARTHRITIS
     Route: 058
     Dates: start: 20170503, end: 20170510

REACTIONS (13)
  - Lymphadenopathy [Unknown]
  - Prurigo [Unknown]
  - Erythema [Unknown]
  - Toxic skin eruption [Unknown]
  - Systemic lupus erythematosus [Unknown]
  - Rash maculo-papular [Recovering/Resolving]
  - Rash pruritic [Unknown]
  - Injection site rash [Recovering/Resolving]
  - Injection site pruritus [Recovering/Resolving]
  - Lichenoid keratosis [Unknown]
  - Neutrophilic dermatosis [Unknown]
  - Toxicity to various agents [Unknown]
  - Urticaria [Unknown]

NARRATIVE: CASE EVENT DATE: 201705
